FAERS Safety Report 5897830-6 (Version None)
Quarter: 2008Q3

REPORT INFORMATION
  Report Type: 
  Country: None (occurrence: None)
  Receive Date: 20080924
  Receipt Date: 20080924
  Transmission Date: 20090109
  Serious: Yes (Other)
  Sender: FDA-Public Use
  Company Number: None

PATIENT
  Age: 43 Year
  Sex: Male
  Weight: 73.4827 kg

DRUGS (2)
  1. LAMICTAL [Suspect]
     Indication: GRAND MAL CONVULSION
     Dosage: 25MG BID PO
     Route: 048
     Dates: start: 20070904, end: 20070911
  2. LAMICTAL [Suspect]
     Indication: GRAND MAL CONVULSION
     Dosage: 25MG BID PO
     Route: 048
     Dates: start: 20070925, end: 20070927

REACTIONS (1)
  - RASH [None]
